FAERS Safety Report 4511090-X (Version None)
Quarter: 2004Q4

REPORT INFORMATION
  Report Type: 
  Country: None (occurrence: None)
  Receive Date: 20041015
  Receipt Date: 20040205
  Transmission Date: 20050328
  Serious: Yes (Other)
  Sender: FDA-Public Use
  Company Number: 2004007393

PATIENT
  Age: 89 Year
  Sex: Female

DRUGS (2)
  1. NEURONTIN [Suspect]
     Indication: PARTIAL SEIZURES
     Dosage: 900 MG (300, TID), ORAL
     Route: 048
     Dates: start: 20040122
  2. DONEPEZIL HCL [Concomitant]

REACTIONS (4)
  - CONVULSION [None]
  - DEFAECATION URGENCY [None]
  - FATIGUE [None]
  - MUSCLE CONTRACTIONS INVOLUNTARY [None]
